FAERS Safety Report 8823249 (Version 3)
Quarter: 2013Q2

REPORT INFORMATION
  Report Type: Spontaneous
  Country: US (occurrence: US)
  Receive Date: 20121003
  Receipt Date: 20130502
  Transmission Date: 20140414
  Serious: Yes (Hospitalization, Congenital Anomaly)
  Sender: FDA-Public Use
  Company Number: US-GLAXOSMITHKLINE-A0995845A

PATIENT
  Age: 0 Year
  Sex: Male

DRUGS (4)
  1. PAXIL [Suspect]
     Indication: ANXIETY
     Dosage: 10MG PER DAY
     Route: 064
  2. NARCOTIC [Concomitant]
     Route: 064
  3. NESTABS FA [Concomitant]
     Indication: PREGNANCY
  4. KEFLEX [Concomitant]
     Indication: URINARY TRACT INFECTION
     Dosage: 500MG PER DAY
     Dates: start: 200108

REACTIONS (6)
  - Cleft lip [Recovering/Resolving]
  - Cleft palate [Unknown]
  - Apnoea [Unknown]
  - Vocal cord paralysis [Unknown]
  - Talipes [Unknown]
  - Foetal exposure during pregnancy [Unknown]
